FAERS Safety Report 23865181 (Version 2)
Quarter: 2024Q2

REPORT INFORMATION
  Report Type: Report from Study
  Country: CH (occurrence: CH)
  Receive Date: 20240517
  Receipt Date: 20240517
  Transmission Date: 20240716
  Serious: Yes (Death, Other)
  Sender: FDA-Public Use
  Company Number: CH-ABBVIE-5759208

PATIENT
  Sex: Female

DRUGS (5)
  1. CARBIDOPA\LEVODOPA [Suspect]
     Active Substance: CARBIDOPA\LEVODOPA
     Indication: Parkinson^s disease
     Dosage: MD: 2.0 ML, CRD: 3.0 ML/H, ED: 1.0 ML, CRN: 1.5 ML/H?FREQUENCY: 24H THERAPY
     Route: 050
     Dates: start: 20240429, end: 20240430
  2. CARBIDOPA\LEVODOPA [Suspect]
     Active Substance: CARBIDOPA\LEVODOPA
     Dosage: MD: 5.0 ML, CRD: 3.2 ML/H, ED: 1.0 ML, CRN: 2.0 ML/H?FREQUENCY: 24H THERAPY
     Route: 050
     Dates: start: 20240507, end: 20240512
  3. CARBIDOPA\LEVODOPA [Suspect]
     Active Substance: CARBIDOPA\LEVODOPA
     Dosage: MD: 2.0 ML, CRD: 3.2 ML/H, ED: 1.0 ML, CRN: 2.0 ML/H?FREQUENCY: 24H THERAPY
     Route: 050
     Dates: start: 20240430, end: 20240507
  4. CARBIDOPA\LEVODOPA [Suspect]
     Active Substance: CARBIDOPA\LEVODOPA
     Dosage: MD: 2.0 ML, CRD: 2.0 ML/H, ED: 1.0 ML, CRN: 1.0 ML/H?FREQUENCY: 24H THERAPY
     Route: 050
     Dates: start: 20240425, end: 20240426
  5. CARBIDOPA\LEVODOPA [Suspect]
     Active Substance: CARBIDOPA\LEVODOPA
     Dosage: MD: 2.0 ML, CRD: 2.8 ML/H, ED: 0.5 ML, CRN: 1.5 ML/H?FREQUENCY: 24H THERAPY
     Route: 050
     Dates: start: 20240426, end: 20240429

REACTIONS (5)
  - Death [Fatal]
  - General physical health deterioration [Not Recovered/Not Resolved]
  - Respiratory failure [Not Recovered/Not Resolved]
  - Enteral nutrition [Not Recovered/Not Resolved]
  - Pyrexia [Not Recovered/Not Resolved]

NARRATIVE: CASE EVENT DATE: 20240101
